FAERS Safety Report 8708859 (Version 2)
Quarter: 2013Q4

REPORT INFORMATION
  Report Type: Spontaneous
  Country: US (occurrence: US)
  Receive Date: 20120806
  Receipt Date: 20131101
  Transmission Date: 20140711
  Serious: No
  Sender: FDA-Public Use
  Company Number: US-009507513-2012SP027824

PATIENT
  Age: 26 Year
  Sex: Female

DRUGS (1)
  1. COPPERTONE DRY OIL CONTINOUS SPRAY SUNSCREEN SPF-10 [Suspect]
     Indication: PRODUCT USED FOR UNKNOWN INDICATION
     Dosage: UNK UNK, UNKNOWN
     Route: 061

REACTIONS (2)
  - Nonspecific reaction [Unknown]
  - Rash [Unknown]
